FAERS Safety Report 25089104 (Version 1)
Quarter: 2025Q1

REPORT INFORMATION
  Report Type: Spontaneous
  Country: US (occurrence: None)
  Receive Date: 20250316
  Receipt Date: 20250316
  Transmission Date: 20250408
  Serious: Yes (Hospitalization)
  Sender: FDA-CTU
  Company Number: None

PATIENT
  Age: 76 Year
  Sex: Male
  Weight: 110.25 kg

DRUGS (1)
  1. JARDIANCE [Suspect]
     Active Substance: EMPAGLIFLOZIN
     Dosage: 2 TABLETS DAILY ORAL
     Route: 048

REACTIONS (7)
  - Pyoderma [None]
  - Penile swelling [None]
  - Dizziness [None]
  - Dizziness [None]
  - Asthenia [None]
  - Renal impairment [None]
  - Dizziness [None]

NARRATIVE: CASE EVENT DATE: 20240828
